FAERS Safety Report 9444508 (Version 1)
Quarter: 2013Q3

REPORT INFORMATION
  Report Type: Spontaneous
  Country: US (occurrence: None)
  Receive Date: 20130806
  Receipt Date: 20130806
  Transmission Date: 20140515
  Serious: Yes (Hospitalization, Other)
  Sender: FDA-Public Use
  Company Number: None

PATIENT
  Age: 57 Year
  Sex: Female
  Weight: 63.05 kg

DRUGS (1)
  1. TRAZADONE [Suspect]
     Dosage: 50-75  EACH NIGHT ORAL
     Route: 048
     Dates: start: 20120301, end: 20130101

REACTIONS (9)
  - Abdominal pain upper [None]
  - Abdominal pain [None]
  - Chest pain [None]
  - Tremor [None]
  - Dyspnoea [None]
  - Cardiac disorder [None]
  - Bedridden [None]
  - Drug withdrawal syndrome [None]
  - Activities of daily living impaired [None]
